FAERS Safety Report 8459459-5 (Version None)
Quarter: 2012Q2

REPORT INFORMATION
  Report Type: 
  Country: None (occurrence: None)
  Receive Date: 20120622
  Receipt Date: 20120614
  Transmission Date: 20120825
  Serious: Yes (Hospitalization)
  Sender: FDA-Public Use
  Company Number: ES-EISAI INC-E3810-05622-SPO-ES

PATIENT
  Sex: Male

DRUGS (4)
  1. PREDNISONE TAB [Suspect]
     Indication: PROSTATE CANCER
     Route: 065
     Dates: start: 20111226
  2. ACIPHEX [Suspect]
     Indication: GASTROINTESTINAL DISORDER THERAPY
     Dosage: UNKNOWN
     Route: 048
     Dates: start: 20111216
  3. ABIRATERONE ACETATE [Suspect]
     Indication: PROSTATE CANCER
     Route: 065
     Dates: start: 20111226
  4. LOSARTAN POTASSIUM [Concomitant]
     Indication: HYPERTENSION
     Dates: start: 20061218

REACTIONS (1)
  - TRANSURETHRAL PROSTATECTOMY [None]
